FAERS Safety Report 8269055-0 (Version None)
Quarter: 2012Q2

REPORT INFORMATION
  Report Type: 
  Country: None (occurrence: None)
  Receive Date: 20120409
  Receipt Date: 20120404
  Transmission Date: 20120825
  Serious: Yes (Other)
  Sender: FDA-Public Use
  Company Number: US-PFIZER INC-2011189127

PATIENT
  Sex: Female

DRUGS (1)
  1. NEURONTIN [Suspect]
     Indication: NERVOUS SYSTEM DISORDER
     Dosage: 600 MG, 3X/DAY

REACTIONS (3)
  - CEREBROVASCULAR ACCIDENT [None]
  - COLECTOMY [None]
  - GASTROINTESTINAL STOMA COMPLICATION [None]
